FAERS Safety Report 15392798 (Version 1)
Quarter: 2018Q3

REPORT INFORMATION
  Report Type: Spontaneous
  Country: FR (occurrence: FR)
  Receive Date: 20180917
  Receipt Date: 20180917
  Transmission Date: 20181010
  Serious: Yes (Life-Threatening)
  Sender: FDA-Public Use
  Company Number: FR-PFIZER INC-2018370213

PATIENT
  Age: 53 Year
  Sex: Female
  Weight: 76 kg

DRUGS (11)
  1. LUTENYL [Concomitant]
     Active Substance: NOMEGESTROL ACETATE
  2. VICTOZA [Concomitant]
     Active Substance: LIRAGLUTIDE
  3. SPECIAFOLDINE [Concomitant]
     Active Substance: FOLIC ACID
  4. VALACICLOVIR [Concomitant]
     Active Substance: VALACYCLOVIR HYDROCHLORIDE
  5. HUMALOG [Concomitant]
     Active Substance: INSULIN LISPRO
  6. DIFFU K [Concomitant]
     Active Substance: POTASSIUM CHLORIDE
  7. PANTOPRAZOLE [Concomitant]
     Active Substance: PANTOPRAZOLE
  8. TOUJEO [Concomitant]
     Active Substance: INSULIN GLARGINE
  9. ARACYTINE [Suspect]
     Active Substance: CYTARABINE
     Indication: ACUTE MYELOID LEUKAEMIA
     Dosage: 3000 MG/M2, SINGLE
     Route: 042
     Dates: start: 20180416, end: 20180416
  10. VITAMIN B12 [Concomitant]
     Active Substance: CYANOCOBALAMIN
  11. METFORMIN [Concomitant]
     Active Substance: METFORMIN HYDROCHLORIDE

REACTIONS (3)
  - Pancytopenia [Recovered/Resolved]
  - Bone marrow failure [Recovered/Resolved]
  - Septic shock [Recovered/Resolved]

NARRATIVE: CASE EVENT DATE: 20180416
